FAERS Safety Report 16250929 (Version 1)
Quarter: 2019Q2

REPORT INFORMATION
  Report Type: Spontaneous
  Country: IT (occurrence: IT)
  Receive Date: 20190429
  Receipt Date: 20190429
  Transmission Date: 20190711
  Serious: Yes (Hospitalization, Other)
  Sender: FDA-Public Use
  Company Number: IT-MYLANLABS-2019M1037304

PATIENT
  Age: 68 Year
  Sex: Female

DRUGS (3)
  1. GEMCITABINE [Suspect]
     Active Substance: GEMCITABINE\GEMCITABINE HYDROCHLORIDE
     Dosage: 1000 MG/M2, CYCLIC ((ON DAYS 1,8 AND 15 EVERY 4 WEEKS) FOR 12 CYCLES)
     Dates: start: 201504, end: 2015
  2. GEMCITABINE [Suspect]
     Active Substance: GEMCITABINE\GEMCITABINE HYDROCHLORIDE
     Indication: PANCREATIC CARCINOMA
     Dosage: 3 CYCLES OF WEEKLY GEMCITABINE,ON DAYS 1, 8 AND 15 EVERY 4 WEEKS
  3. PACLITAXEL. [Suspect]
     Active Substance: PACLITAXEL
     Indication: PANCREATIC CARCINOMA
     Dosage: 125 MILLIGRAM/SQ. METER, CYCLE (ON DAYS 1, 8 AND 15 EVERY 4 WEEKS, FOR 12 CYCLES)
     Dates: start: 201504, end: 2015

REACTIONS (1)
  - Organising pneumonia [Recovered/Resolved]
